FAERS Safety Report 4443727-8 (Version None)
Quarter: 2004Q3

REPORT INFORMATION
  Report Type: 
  Country: None (occurrence: None)
  Receive Date: 20040729
  Receipt Date: 20040414
  Transmission Date: 20050211
  Serious: Yes (Death)
  Sender: FDA-Public Use
  Company Number: USA-2004-0014551

PATIENT
  Age: 39 Year
  Sex: Male
  Weight: 85.3 kg

DRUGS (2)
  1. MORPHINE SULFATE [Suspect]
  2. COCAINE [Suspect]

REACTIONS (1)
  - MULTIPLE DRUG OVERDOSE [None]
